FAERS Safety Report 6093238-1 (Version None)
Quarter: 2009Q1

REPORT INFORMATION
  Report Type: 
  Country: None (occurrence: None)
  Receive Date: 20090226
  Receipt Date: 20090217
  Transmission Date: 20090719
  Serious: Yes (Other)
  Sender: FDA-Public Use
  Company Number: US-JNJFOC-20080402420

PATIENT
  Sex: Male

DRUGS (19)
  1. INFLIXIMAB [Suspect]
     Route: 042
  2. INFLIXIMAB [Suspect]
     Route: 042
  3. INFLIXIMAB [Suspect]
     Route: 042
  4. INFLIXIMAB [Suspect]
     Route: 042
  5. INFLIXIMAB [Suspect]
     Route: 042
  6. INFLIXIMAB [Suspect]
     Route: 042
  7. INFLIXIMAB [Suspect]
     Route: 042
  8. INFLIXIMAB [Suspect]
     Route: 042
  9. INFLIXIMAB [Suspect]
     Route: 042
  10. INFLIXIMAB [Suspect]
     Dosage: 12TH INFUSION SO FAR
     Route: 042
  11. INFLIXIMAB [Suspect]
     Route: 042
  12. INFLIXIMAB [Suspect]
     Route: 042
  13. INFLIXIMAB [Suspect]
     Indication: CROHN'S DISEASE
     Route: 042
  14. 5-ASA [Concomitant]
     Dosage: ROUTE: ORAL AND RECTAL
  15. ANTIBIOTICS [Concomitant]
  16. PROBIOTICS [Concomitant]
  17. CORTICOSTEROIDS [Concomitant]
  18. METHOTREXATE [Concomitant]
  19. MERCAPTOPURINE [Concomitant]

REACTIONS (1)
  - MALIGNANT MELANOMA [None]
